FAERS Safety Report 15429289 (Version 3)
Quarter: 2019Q2

REPORT INFORMATION
  Report Type: Spontaneous
  Country: IT (occurrence: IT)
  Receive Date: 20180926
  Receipt Date: 20190513
  Transmission Date: 20190711
  Serious: Yes (Hospitalization)
  Sender: FDA-Public Use
  Company Number: IT-MYLANLABS-2018M1070049

PATIENT
  Age: 35 Year
  Sex: Male

DRUGS (1)
  1. BROMOCRIPTINE MYLAN [Suspect]
     Active Substance: BROMOCRIPTINE
     Indication: HYPERPROLACTINAEMIA
     Dosage: UNK
     Route: 048
     Dates: start: 20171025, end: 20171025

REACTIONS (3)
  - Convulsions local [Unknown]
  - Cognitive disorder [Unknown]
  - Loss of consciousness [Unknown]

NARRATIVE: CASE EVENT DATE: 20171025
